FAERS Safety Report 17016793 (Version 1)
Quarter: 2019Q4

REPORT INFORMATION
  Report Type: Spontaneous
  Country: GB (occurrence: GB)
  Receive Date: 20191111
  Receipt Date: 20191111
  Transmission Date: 20200122
  Serious: Yes (Other)
  Sender: FDA-Public Use
  Company Number: GB-OTSUKA-2019_037838

PATIENT
  Sex: Female

DRUGS (3)
  1. MAGNESIUM PHOSPHATE [Concomitant]
     Active Substance: MAGNESIUM PHOSPHATE, TRIBASIC, PENTAHYDRATE
     Indication: PRODUCT USED FOR UNKNOWN INDICATION
     Dosage: UNK
     Route: 065
  2. ARIPIPRAZOLE. [Suspect]
     Active Substance: ARIPIPRAZOLE
     Indication: PRODUCT USED FOR UNKNOWN INDICATION
     Dosage: 10 MG, UNK
     Route: 048
     Dates: start: 201901
  3. IODINE. [Concomitant]
     Active Substance: IODINE
     Indication: PAIN
     Dosage: UNK
     Route: 065

REACTIONS (5)
  - Headache [Unknown]
  - Eye pain [Unknown]
  - Chest pain [Unknown]
  - Angina pectoris [Unknown]
  - Dizziness [Unknown]

NARRATIVE: CASE EVENT DATE: 201901
